FAERS Safety Report 5982976-4 (Version None)
Quarter: 2008Q4

REPORT INFORMATION
  Report Type: 
  Country: None (occurrence: None)
  Receive Date: 20081205
  Receipt Date: 20081205
  Transmission Date: 20090506
  Serious: Yes (Other)
  Sender: FDA-Public Use
  Company Number: None

PATIENT
  Age: 56 Year
  Sex: Male

DRUGS (1)
  1. METOPROLOL SUCCINATE EXTENDED RELEASE [Suspect]
     Indication: HYPERTENSION
     Dosage: 50MG DAILY PO
     Route: 048
     Dates: start: 20081013, end: 20081203

REACTIONS (2)
  - HYPOTENSION [None]
  - PRODUCT QUALITY ISSUE [None]
